FAERS Safety Report 6025030-8 (Version None)
Quarter: 2008Q4

REPORT INFORMATION
  Report Type: 
  Country: None (occurrence: None)
  Receive Date: 20081230
  Receipt Date: 20081230
  Transmission Date: 20090506
  Serious: Yes (Life-Threatening, Disabling, Other)
  Sender: FDA-Public Use
  Company Number: None

PATIENT
  Age: 53 Year
  Sex: Female
  Weight: 68.0396 kg

DRUGS (1)
  1. MERIDIA [Suspect]
     Indication: OVERWEIGHT
     Dosage: 10MG DAILY PO
     Route: 048
     Dates: start: 20060210, end: 20060505

REACTIONS (1)
  - LIP AND/OR ORAL CAVITY CANCER [None]
